FAERS Safety Report 16140607 (Version 2)
Quarter: 2019Q2

REPORT INFORMATION
  Report Type: Spontaneous
  Country: JP (occurrence: JP)
  Receive Date: 20190401
  Receipt Date: 20190524
  Transmission Date: 20190711
  Serious: Yes (Hospitalization, Other)
  Sender: FDA-Public Use
  Company Number: JP-SUNOVION-2019SUN001199

PATIENT
  Age: 53 Year
  Sex: Female

DRUGS (9)
  1. LOXONIN [Suspect]
     Active Substance: LOXOPROFEN SODIUM
     Dosage: DOSE UNKNOWN
     Route: 065
     Dates: start: 20180113, end: 20180118
  2. MAGMITT [Suspect]
     Active Substance: MAGNESIUM OXIDE
     Dosage: ORAL ADMINISTRATION ONCE, DOSE UNKNOWN
     Route: 065
  3. LUNESTA [Suspect]
     Active Substance: ESZOPICLONE
     Dosage: 3 MG, AS NECESSARY
     Route: 048
     Dates: start: 20180115, end: 20180115
  4. AMLODIN [Suspect]
     Active Substance: AMLODIPINE BESYLATE
     Indication: HYPERTENSION
     Dosage: DOSE UNKNOWN
     Route: 065
  5. FLOMOX [CEFCAPENE PIVOXIL HYDROCHLORIDE] [Suspect]
     Active Substance: CEFCAPENE PIVOXIL HYDROCHLORIDE
     Dosage: DOSE UNKNOWN
     Route: 065
  6. ALOSENN [ACHILLEA MILLEFOLIUM;RUBIA TINCTORUM ROOT TINCTURE;SENNA ALEX [Suspect]
     Active Substance: ACHILLEA MILLEFOLIUM\RUBIA TINCTURE\SENNA FRUIT EXTRACT\SENNA LEAF\TARAXACUM OFFICINALE
     Dosage: DOSE UNKNOWN
     Route: 065
  7. SELBEX [Suspect]
     Active Substance: TEPRENONE
     Dosage: DOSE UNKNOWN
     Route: 048
     Dates: start: 20180113, end: 20180118
  8. VOLTAREN [Concomitant]
     Active Substance: DICLOFENAC SODIUM
     Dosage: PRN, DOSE UNKNOWN
     Route: 065
     Dates: start: 20180112, end: 20180112
  9. LUNESTA [Suspect]
     Active Substance: ESZOPICLONE
     Indication: INSOMNIA
     Dosage: 2 MG, AS NECESSARY
     Route: 048
     Dates: start: 20180111, end: 20180111

REACTIONS (1)
  - Drug-induced liver injury [Unknown]
